FAERS Safety Report 15318960 (Version 1)
Quarter: 2018Q3

REPORT INFORMATION
  Report Type: Spontaneous
  Country: US (occurrence: US)
  Receive Date: 20180820
  Receipt Date: 20180820
  Transmission Date: 20181010
  Serious: Yes (Disabling)
  Sender: FDA-Public Use
  Company Number: None

PATIENT
  Age: 50 Year
  Sex: Male
  Weight: 117 kg

DRUGS (1)
  1. PERMETHRIN. [Suspect]
     Active Substance: PERMETHRIN
     Indication: INFECTION PROPHYLAXIS
     Dosage: ?          OTHER ROUTE:IN CLOTHING?
     Dates: start: 20041001, end: 20110101

REACTIONS (2)
  - Skin disorder [None]
  - Occupational exposure to product [None]

NARRATIVE: CASE EVENT DATE: 20050101
